FAERS Safety Report 7853415-3 (Version None)
Quarter: 2011Q4

REPORT INFORMATION
  Report Type: 
  Country: None (occurrence: None)
  Receive Date: 20111026
  Receipt Date: 20111017
  Transmission Date: 20120403
  Serious: Yes (Life-Threatening)
  Sender: FDA-Public Use
  Company Number: US-BAYER-2011-100291

PATIENT
  Sex: Female

DRUGS (1)
  1. YAZ [Suspect]
     Route: 048

REACTIONS (6)
  - PULMONARY EMBOLISM [None]
  - ANHEDONIA [None]
  - DEEP VEIN THROMBOSIS [None]
  - ANXIETY [None]
  - INJURY [None]
  - PAIN [None]
